FAERS Safety Report 9402821 (Version 1)
Quarter: 2013Q3

REPORT INFORMATION
  Report Type: Spontaneous
  Country: US (occurrence: None)
  Receive Date: 20130715
  Receipt Date: 20130715
  Transmission Date: 20140515
  Serious: Yes (Other)
  Sender: FDA-Public Use
  Company Number: None

PATIENT
  Age: 43 Year
  Sex: Male
  Weight: 93.44 kg

DRUGS (1)
  1. METOPROLOL SUCCINATE EXTENDED-RELEASE [Suspect]
     Indication: HEART RATE INCREASED
     Dates: start: 20130118, end: 20130729

REACTIONS (10)
  - Local swelling [None]
  - Local swelling [None]
  - Local swelling [None]
  - Weight increased [None]
  - Flatulence [None]
  - Abdominal distension [None]
  - Constipation [None]
  - Peripheral coldness [None]
  - Dizziness [None]
  - Dizziness [None]
